FAERS Safety Report 4558571-0 (Version None)
Quarter: 2005Q1

REPORT INFORMATION
  Report Type: 
  Country: None (occurrence: None)
  Receive Date: 20050121
  Receipt Date: 20040203
  Transmission Date: 20050727
  Serious: Yes (Hospitalization)
  Sender: FDA-Public Use
  Company Number: FR-ROCHE-358017

PATIENT
  Age: 79 Year
  Sex: Male

DRUGS (1)
  1. ACITRETIN [Suspect]
     Indication: PSORIASIS
     Route: 065

REACTIONS (6)
  - CAPILLARY LEAK SYNDROME [None]
  - LYMPHADENOPATHY [None]
  - MYALGIA [None]
  - RHABDOMYOLYSIS [None]
  - SKIN HAEMORRHAGE [None]
  - WEIGHT INCREASED [None]
